FAERS Safety Report 6150093-9 (Version None)
Quarter: 2009Q2

REPORT INFORMATION
  Report Type: 
  Country: None (occurrence: None)
  Receive Date: 20090409
  Receipt Date: 20090401
  Transmission Date: 20091009
  Serious: Yes (Other)
  Sender: FDA-Public Use
  Company Number: JP-PFIZER INC-2009193063

PATIENT

DRUGS (1)
  1. HALCION [Suspect]
     Route: 048

REACTIONS (3)
  - DIZZINESS [None]
  - PARALYSIS [None]
  - VISION BLURRED [None]
